FAERS Safety Report 9152800 (Version 2)
Quarter: 2013Q2

REPORT INFORMATION
  Report Type: Spontaneous
  Country: SG (occurrence: SG)
  Receive Date: 20130111
  Receipt Date: 20130604
  Transmission Date: 20140414
  Serious: Yes (Other)
  Sender: FDA-Public Use
  Company Number: SG-JNJFOC-20130102866

PATIENT
  Sex: 0

DRUGS (8)
  1. PARACETAMOL [Suspect]
     Indication: PAIN
     Route: 065
  2. PARACETAMOL [Suspect]
     Indication: INFECTION
     Route: 065
  3. UNSPECIFIED NSAIDS [Suspect]
     Indication: PAIN
     Route: 065
  4. UNSPECIFIED NSAIDS [Suspect]
     Indication: INFECTION
     Route: 065
  5. ANTIBIOTIC (NOS) [Suspect]
     Indication: PAIN
     Route: 065
  6. ANTIBIOTIC (NOS) [Suspect]
     Indication: INFECTION
     Route: 065
  7. BETA-LACTAMS [Suspect]
     Indication: PAIN
     Route: 065
  8. BETA-LACTAMS [Suspect]
     Indication: INFECTION
     Route: 065

REACTIONS (6)
  - Anaphylactic reaction [Unknown]
  - Angioedema [Unknown]
  - Respiratory disorder [Unknown]
  - Adverse event [Unknown]
  - Gastrointestinal disorder [Unknown]
  - Rash [Unknown]
